FAERS Safety Report 4423605-0 (Version None)
Quarter: 2004Q3

REPORT INFORMATION
  Report Type: 
  Country: None (occurrence: None)
  Receive Date: 20040805
  Receipt Date: 20040726
  Transmission Date: 20050211
  Serious: Yes (Hospitalization)
  Sender: FDA-Public Use
  Company Number: 04P-167-0268478-00

PATIENT
  Age: 54 Year
  Sex: Female

DRUGS (3)
  1. ISOPTIN [Suspect]
     Indication: MIGRAINE
     Dosage: 40 MG, 1 IN 1 D, PER ORAL
     Route: 048
     Dates: start: 20040413, end: 20040514
  2. METHYSERGIDE [Concomitant]
  3. TRIPTANS [Concomitant]

REACTIONS (1)
  - CEREBRAL HAEMORRHAGE [None]
